FAERS Safety Report 9402360 (Version 1)
Quarter: 2013Q3

REPORT INFORMATION
  Report Type: Spontaneous
  Country: BR (occurrence: BR)
  Receive Date: 20130716
  Receipt Date: 20130716
  Transmission Date: 20140515
  Serious: Yes (Other)
  Sender: FDA-Public Use
  Company Number: BR-PFIZER INC-2013195690

PATIENT
  Sex: Male

DRUGS (1)
  1. MOTRIN [Suspect]
     Dosage: 600 MG, UNK
     Dates: end: 2013

REACTIONS (13)
  - Presyncope [Recovering/Resolving]
  - Nocturnal dyspnoea [Recovering/Resolving]
  - Eye disorder [Recovering/Resolving]
  - Asthenopia [Recovering/Resolving]
  - Eye pain [Recovering/Resolving]
  - Blister [Recovering/Resolving]
  - Fatigue [Recovering/Resolving]
  - Malaise [Recovering/Resolving]
  - Nasal congestion [Recovering/Resolving]
  - Headache [Recovering/Resolving]
  - Dry mouth [Recovering/Resolving]
  - Abdominal discomfort [Recovering/Resolving]
  - Feeling abnormal [Recovering/Resolving]
